FAERS Safety Report 7226906-6 (Version None)
Quarter: 2011Q1

REPORT INFORMATION
  Report Type: 
  Country: None (occurrence: None)
  Receive Date: 20110114
  Receipt Date: 20101231
  Transmission Date: 20110831
  Serious: No
  Sender: FDA-Public Use
  Company Number: US-B.I. PHARMACEUTICALS,INC./RIDGEFIELD-2011-BP-00430BP

PATIENT
  Sex: Male

DRUGS (9)
  1. COREG [Concomitant]
     Indication: HYPERTENSION
  2. SYNTHROID [Concomitant]
     Indication: HYPOTHYROIDISM
  3. ALLOPURINOL [Concomitant]
  4. PROZAC [Concomitant]
     Indication: DEPRESSION
  5. LASIX [Concomitant]
     Indication: RENAL FAILURE
  6. PRADAXA [Suspect]
     Indication: ATRIAL FIBRILLATION
     Dosage: 150 MG
     Route: 048
     Dates: start: 20101218
  7. NORVASC [Concomitant]
     Indication: HYPERTENSION
  8. HUMALIN [Concomitant]
     Indication: DIABETES MELLITUS
  9. PLAVIX [Concomitant]
     Indication: ATRIAL FIBRILLATION

REACTIONS (1)
  - BLOOD GLUCOSE INCREASED [None]
